FAERS Safety Report 8832072 (Version 2)
Quarter: 2014Q3

REPORT INFORMATION
  Report Type: Report from Study
  Country: US (occurrence: US)
  Receive Date: 20121009
  Receipt Date: 20140910
  Transmission Date: 20150326
  Serious: Yes (Hospitalization, Other)
  Sender: FDA-Public Use
  Company Number: US-ROCHE-1134146

PATIENT
  Age: 84 Year
  Sex: Female

DRUGS (10)
  1. THYROXINE [Concomitant]
     Active Substance: LEVOTHYROXINE
  2. PREDNISONE. [Concomitant]
     Active Substance: PREDNISONE
  3. CYTOXAN [Concomitant]
     Active Substance: CYCLOPHOSPHAMIDE
  4. COUMADIN [Concomitant]
     Active Substance: WARFARIN SODIUM
  5. KLONOPIN [Concomitant]
     Active Substance: CLONAZEPAM
     Route: 065
  6. LASIX [Concomitant]
     Active Substance: FUROSEMIDE
  7. K-DUR [Concomitant]
     Active Substance: POTASSIUM CHLORIDE
  8. DIGOXIN. [Concomitant]
     Active Substance: DIGOXIN
  9. RITUXAN [Suspect]
     Active Substance: RITUXIMAB
     Indication: AUTOIMMUNE HAEMOLYTIC ANAEMIA
     Route: 042
  10. ZOLOFT [Concomitant]
     Active Substance: SERTRALINE HYDROCHLORIDE

REACTIONS (6)
  - Abdominal pain [Unknown]
  - Off label use [Unknown]
  - Chest pain [Unknown]
  - Altered state of consciousness [Unknown]
  - Anaemia [Unknown]
  - Vomiting [Unknown]

NARRATIVE: CASE EVENT DATE: 20050616
